FAERS Safety Report 12845062 (Version 1)
Quarter: 2016Q4

REPORT INFORMATION
  Report Type: Spontaneous
  Country: US (occurrence: US)
  Receive Date: 20161013
  Receipt Date: 20161013
  Transmission Date: 20170207
  Serious: Yes (Other)
  Sender: FDA-Public Use
  Company Number: US-LEITERS-1058319

PATIENT

DRUGS (1)
  1. LIDOCAINE HCL 1%/PHENYLEPHRINE HCL 1.5% IN STERILE WATER FOR INJECTION [Suspect]
     Active Substance: LIDOCAINE HYDROCHLORIDE\PHENYLEPHRINE HYDROCHLORIDE
     Indication: CATARACT OPERATION
     Route: 050
     Dates: start: 20160919, end: 20160919

REACTIONS (2)
  - Panophthalmitis [None]
  - Toxic anterior segment syndrome [None]
